FAERS Safety Report 7565642-3 (Version None)
Quarter: 2011Q2

REPORT INFORMATION
  Report Type: 
  Country: None (occurrence: None)
  Receive Date: 20110616
  Receipt Date: 20110609
  Transmission Date: 20111010
  Serious: Yes (Hospitalization, Other)
  Sender: FDA-Public Use
  Company Number: TRP_07767_2011

PATIENT
  Sex: Male

DRUGS (3)
  1. PEG-INTRON [Suspect]
     Indication: HEPATITIS C
     Dates: start: 20101110, end: 20110201
  2. NORCO [Concomitant]
  3. RIBASPHERE [Suspect]
     Indication: HEPATITIS C
     Dates: start: 20101110, end: 20110201

REACTIONS (4)
  - DRUG INEFFECTIVE [None]
  - LABORATORY TEST ABNORMAL [None]
  - HYPOTENSION [None]
  - HEART RATE DECREASED [None]
